FAERS Safety Report 18324342 (Version 11)
Quarter: 2022Q2

REPORT INFORMATION
  Report Type: Report from Study
  Country: CL (occurrence: CL)
  Receive Date: 20200929
  Receipt Date: 20220512
  Transmission Date: 20220721
  Serious: Yes (Death, Hospitalization, Other)
  Sender: FDA-Public Use
  Company Number: NVSC2019CL094575

PATIENT
  Sex: Female

DRUGS (9)
  1. FEMARA [Suspect]
     Active Substance: LETROZOLE
     Indication: Breast cancer
     Dosage: 2.5 MG
     Route: 048
  2. KISQALI [Suspect]
     Active Substance: RIBOCICLIB
     Indication: Breast cancer
     Dosage: 400 MG, BID
     Route: 048
     Dates: start: 20191018
  3. KISQALI [Suspect]
     Active Substance: RIBOCICLIB
     Dosage: 400 MG, BID
     Route: 048
     Dates: start: 20191018
  4. KISQALI [Suspect]
     Active Substance: RIBOCICLIB
     Dosage: 600 MG, QD
     Route: 048
     Dates: start: 20191018
  5. KISQALI [Suspect]
     Active Substance: RIBOCICLIB
     Dosage: 600 MG, QD
     Route: 048
     Dates: start: 20191018
  6. KISQALI [Suspect]
     Active Substance: RIBOCICLIB
     Dosage: 600 MG
     Route: 048
     Dates: start: 20191019
  7. KISQALI [Suspect]
     Active Substance: RIBOCICLIB
     Dosage: 600 MG
     Route: 065
  8. KISQALI [Suspect]
     Active Substance: RIBOCICLIB
     Dosage: UNK
     Route: 065
     Dates: start: 20200511
  9. TAMOXIFEN [Concomitant]
     Active Substance: TAMOXIFEN
     Indication: Breast cancer
     Dosage: UNK
     Route: 065
     Dates: start: 2014

REACTIONS (47)
  - Death [Fatal]
  - Device related infection [Unknown]
  - Oesophageal perforation [Unknown]
  - Decreased immune responsiveness [Unknown]
  - Pulmonary mass [Unknown]
  - Hepatic lesion [Unknown]
  - Bone lesion [Unknown]
  - Lumbar vertebral fracture [Unknown]
  - Breast cancer recurrent [Unknown]
  - Metastases to bone [Unknown]
  - Limb discomfort [Unknown]
  - Arthropathy [Unknown]
  - Discomfort [Unknown]
  - Vein disorder [Unknown]
  - Musculoskeletal disorder [Unknown]
  - Full blood count decreased [Not Recovered/Not Resolved]
  - Poikilocytosis [Not Recovered/Not Resolved]
  - Carbohydrate antigen 15-3 [Unknown]
  - Red blood cell count decreased [Unknown]
  - Haematocrit decreased [Unknown]
  - Red cell distribution width increased [Unknown]
  - Red blood cell sedimentation rate increased [Unknown]
  - Anisocytosis [Unknown]
  - Rouleaux formation [Unknown]
  - Feeling abnormal [Recovering/Resolving]
  - Pain in extremity [Recovering/Resolving]
  - Reticulocyte percentage increased [Not Recovered/Not Resolved]
  - Blood phosphorus increased [Not Recovered/Not Resolved]
  - Haemoglobin decreased [Unknown]
  - Platelet count decreased [Unknown]
  - Low density lipoprotein increased [Not Recovered/Not Resolved]
  - Sinus tachycardia [Unknown]
  - Arthritis [Unknown]
  - Arthralgia [Unknown]
  - Blood cholesterol increased [Unknown]
  - Neutrophil count decreased [Unknown]
  - Lymphocyte count decreased [Not Recovered/Not Resolved]
  - White blood cell count decreased [Unknown]
  - Constipation [Not Recovered/Not Resolved]
  - Overdose [Unknown]
  - Cough [Unknown]
  - Nasopharyngitis [Unknown]
  - Chest discomfort [Unknown]
  - Drug intolerance [Unknown]
  - Fibrosis [Unknown]
  - Vomiting [Unknown]
  - Nausea [Unknown]

NARRATIVE: CASE EVENT DATE: 20170101
